FAERS Safety Report 7259117-9 (Version None)
Quarter: 2011Q1

REPORT INFORMATION
  Report Type: 
  Country: None (occurrence: None)
  Receive Date: 20110129
  Receipt Date: 20100721
  Transmission Date: 20110831
  Serious: No
  Sender: FDA-Public Use
  Company Number: US-ABBOTT-10P-163-0658273-00

PATIENT
  Sex: Female

DRUGS (3)
  1. HUMIRA [Suspect]
  2. HUMIRA [Suspect]
     Indication: PSORIASIS
     Dosage: WAS TO TAKE 80MG 1ST LOADING DOSE, AND 40MG Q2WKS AFTER THAT.
     Route: 058
     Dates: start: 20100707, end: 20100707
  3. HUMIRA [Suspect]
     Route: 058
     Dates: start: 20100708, end: 20100708

REACTIONS (3)
  - OVERDOSE [None]
  - INCORRECT DOSE ADMINISTERED [None]
  - RASH PAPULAR [None]
